FAERS Safety Report 10204112 (Version 1)
Quarter: 2014Q2

REPORT INFORMATION
  Report Type: Spontaneous
  Country: GB (occurrence: GB)
  Receive Date: 20140529
  Receipt Date: 20140529
  Transmission Date: 20141212
  Serious: Yes (Other)
  Sender: FDA-Public Use
  Company Number: PHHY2014GB064756

PATIENT
  Age: 69 Year
  Sex: Male
  Weight: 99.6 kg

DRUGS (12)
  1. OMEPRAZOLE [Suspect]
     Indication: DYSPEPSIA
     Dosage: 20 MG, UNK
     Route: 048
     Dates: end: 20140428
  2. ATORVASTATIN [Concomitant]
  3. CALCIUM FOLINATE [Concomitant]
  4. DEXAMETHASONE [Concomitant]
  5. DIFFLAM [Concomitant]
  6. FLUOROURACIL [Concomitant]
  7. LOPERAMIDE [Concomitant]
  8. METOCLOPRAMIDE [Concomitant]
  9. NYSTATIN [Concomitant]
  10. ONDANSETRON [Concomitant]
  11. OXALIPLATIN [Concomitant]
  12. PROPRANOLOL [Concomitant]

REACTIONS (4)
  - Muscle disorder [Unknown]
  - Hypomagnesaemia [Recovered/Resolved]
  - Nausea [Unknown]
  - Paraesthesia [Unknown]
